FAERS Safety Report 4615943-3 (Version None)
Quarter: 2005Q1

REPORT INFORMATION
  Report Type: 
  Country: None (occurrence: None)
  Receive Date: 20050318
  Receipt Date: 20050307
  Transmission Date: 20050727
  Serious: Yes (Hospitalization)
  Sender: FDA-Public Use
  Company Number: RENA-11306

PATIENT
  Age: 44 Year
  Sex: Male

DRUGS (2)
  1. PHOSBLOCK [Suspect]
     Indication: HYPERPHOSPHATAEMIA
     Dosage: 1.5 G DAILY PO
     Route: 048
     Dates: start: 20041101
  2. PHOSBLOCK [Suspect]
     Indication: HYPERPHOSPHATAEMIA
     Dosage: 0.75 G DAILY PO
     Route: 048
     Dates: start: 20041025, end: 20041031

REACTIONS (1)
  - PNEUMONIA [None]
